FAERS Safety Report 23733298 (Version 2)
Quarter: 2024Q2

REPORT INFORMATION
  Report Type: Report from Study
  Country: FR (occurrence: None)
  Receive Date: 20240411
  Receipt Date: 20240415
  Transmission Date: 20240715
  Serious: Yes (Other)
  Sender: FDA-Public Use
  Company Number: 2023A296305

PATIENT
  Sex: Female
  Weight: 79 kg

DRUGS (2)
  1. IMFINZI [Suspect]
     Active Substance: DURVALUMAB
     Indication: Biliary tract disorder
     Route: 042
     Dates: start: 20231016
  2. GEMCITABINE-CISPLATIN [Concomitant]

REACTIONS (4)
  - Pancytopenia [Unknown]
  - Intermenstrual bleeding [Unknown]
  - Treatment failure [Unknown]
  - Toxicity to various agents [Unknown]
